FAERS Safety Report 6583349-6 (Version None)
Quarter: 2010Q1

REPORT INFORMATION
  Report Type: 
  Country: None (occurrence: None)
  Receive Date: 20100216
  Receipt Date: 20100203
  Transmission Date: 20100710
  Serious: No
  Sender: FDA-Public Use
  Company Number: US-B.I. PHARMACEUTICALS,INC./RIDGEFIELD-2010-BP-00345BP

PATIENT
  Age: 67 Year
  Sex: Female

DRUGS (4)
  1. CATAPRES-TTS-1 [Suspect]
     Indication: SEDATIVE THERAPY
     Dosage: 0.3 MG
     Route: 061
     Dates: start: 20091208, end: 20091210
  2. ASPIRIN [Concomitant]
  3. VITAMINS [Concomitant]
  4. TYLENOL-500 [Concomitant]

REACTIONS (1)
  - HYPOTENSION [None]
